FAERS Safety Report 4439717-1 (Version None)
Quarter: 2004Q3

REPORT INFORMATION
  Report Type: 
  Country: None (occurrence: None)
  Receive Date: 20040831
  Receipt Date: 20040816
  Transmission Date: 20050211
  Serious: Yes (Death)
  Sender: FDA-Public Use
  Company Number: 2004-0007367

PATIENT

DRUGS (3)
  1. VIREAD [Suspect]
     Indication: HIV INFECTION
  2. 3TC (LAMIVUDINE) [Concomitant]
  3. EFAVIRENZ (EFAVIRENZ) [Concomitant]

REACTIONS (7)
  - HEPATITIS C VIRUS [None]
  - HEPATOTOXICITY [None]
  - LACTIC ACIDOSIS [None]
  - LIVER TRANSPLANT [None]
  - MITOCHONDRIAL TOXICITY [None]
  - PANCREATITIS [None]
  - RENAL FAILURE [None]
